FAERS Safety Report 4457375-7 (Version None)
Quarter: 2004Q3

REPORT INFORMATION
  Report Type: 
  Country: None (occurrence: None)
  Receive Date: 20040922
  Receipt Date: 20040907
  Transmission Date: 20050211
  Serious: Yes (Hospitalization, Other)
  Sender: FDA-Public Use
  Company Number: US_0408104864

PATIENT
  Age: 45 Year
  Sex: Female
  Weight: 88 kg

DRUGS (6)
  1. PROZAC [Suspect]
     Indication: DEPRESSION
     Dosage: 10 MG/1DAY
     Dates: start: 20031201
  2. DOCETAXEL [Concomitant]
  3. CAPECITABINE [Concomitant]
  4. HYZAAR [Concomitant]
  5. XANAX (ALPRAZOLAM DUM) [Concomitant]
  6. COUMADIN [Concomitant]

REACTIONS (11)
  - BONE LESION [None]
  - CERVICAL VERTEBRAL FRACTURE [None]
  - DISEASE PROGRESSION [None]
  - INTERVERTEBRAL DISC DISORDER [None]
  - LUNG NEOPLASM [None]
  - METASTASES TO LIVER [None]
  - METASTASES TO NECK [None]
  - METASTATIC NEOPLASM [None]
  - NECK PAIN [None]
  - PATHOLOGICAL FRACTURE [None]
  - REFLUX OESOPHAGITIS [None]
